FAERS Safety Report 11642699 (Version 5)
Quarter: 2018Q1

REPORT INFORMATION
  Report Type: Spontaneous
  Country: ES (occurrence: ES)
  Receive Date: 20151020
  Receipt Date: 20180327
  Transmission Date: 20180508
  Serious: Yes (Other)
  Sender: FDA-Public Use
  Company Number: ES-AUROBINDO-AUR-APL-2015-09281

PATIENT
  Age: 56 Year
  Sex: Female

DRUGS (21)
  1. GABAPENTIN. [Suspect]
     Active Substance: GABAPENTIN
     Dosage: 1100 MG/DAY
  2. GABAPENTIN. [Suspect]
     Active Substance: GABAPENTIN
     Dosage: 1500 MG/DAY
  3. TRAMADOL. [Suspect]
     Active Substance: TRAMADOL
     Dosage: 50 MG/DAY
  4. AMITRIPTYLINE [Suspect]
     Active Substance: AMITRIPTYLINE
     Indication: NEURALGIA
     Dosage: 10 MG/DAY
  5. GABAPENTIN. [Suspect]
     Active Substance: GABAPENTIN
     Dosage: 2200 MG/DAY
  6. GABAPENTIN. [Suspect]
     Active Substance: GABAPENTIN
     Dosage: 1500 MG, DAILY
     Route: 065
  7. GABAPENTIN. [Suspect]
     Active Substance: GABAPENTIN
     Dosage: 1200 MG/DAY; INITIAL DOSE; LATER INCREASED TO 2200MG/DAY ()
     Route: 065
  8. GABAPENTIN. [Suspect]
     Active Substance: GABAPENTIN
     Dosage: 1100 MG/DAY
  9. TRAMADOL. [Suspect]
     Active Substance: TRAMADOL
     Indication: PAIN
     Dosage: UNK
     Route: 065
  10. PARACETAMOL [Concomitant]
     Active Substance: ACETAMINOPHEN
     Indication: NEURALGIA
     Dosage: 3 GRAM
     Route: 065
  11. DULOXETINE 30 MG [Suspect]
     Active Substance: DULOXETINE
     Indication: ANXIETY
     Dosage: 30 MG, DAILY
     Route: 065
  12. GABAPENTIN. [Suspect]
     Active Substance: GABAPENTIN
     Indication: NEURALGIA
     Dosage: 1100 MG, DAILY
     Route: 065
  13. AMITRIPTYLINE [Suspect]
     Active Substance: AMITRIPTYLINE
     Indication: PRODUCT USED FOR UNKNOWN INDICATION
     Dosage: 10 MG, DAILY
     Route: 065
  14. AMITRIPTYLINE [Suspect]
     Active Substance: AMITRIPTYLINE
     Dosage: 10 MG/DAY
  15. GABAPENTIN. [Suspect]
     Active Substance: GABAPENTIN
     Indication: PRODUCT USED FOR UNKNOWN INDICATION
     Dosage: 2200 MG, DAILY
     Route: 065
  16. GABAPENTIN. [Suspect]
     Active Substance: GABAPENTIN
     Dosage: 2200 MG/DAY
  17. TRAMADOL. [Suspect]
     Active Substance: TRAMADOL
     Indication: NEURALGIA
     Dosage: DOSE REDUCED TO 50 MG/DAY, SUBSEQUENTLY DISCONTINUED ()
     Route: 065
  18. TRAMADOL. [Suspect]
     Active Substance: TRAMADOL
     Dosage: ()
  19. DULOXETINE 30 MG [Suspect]
     Active Substance: DULOXETINE
     Indication: DEPRESSION
  20. GABAPENTIN. [Suspect]
     Active Substance: GABAPENTIN
     Dosage: 1200 MG/DAY
  21. TRAMADOL. [Suspect]
     Active Substance: TRAMADOL
     Dosage: 100 MG/DAY

REACTIONS (10)
  - Paranoia [Unknown]
  - Delusion [Unknown]
  - Rash pruritic [Recovered/Resolved]
  - Anxiety [Unknown]
  - Hallucination, visual [Unknown]
  - Drug intolerance [Unknown]
  - Hypertension [Recovered/Resolved]
  - Psychotic disorder due to a general medical condition [Recovered/Resolved]
  - Substance-induced psychotic disorder [Recovered/Resolved]
  - Depression [Unknown]
